FAERS Safety Report 25037412 (Version 1)
Quarter: 2025Q1

REPORT INFORMATION
  Report Type: Spontaneous
  Country: RU (occurrence: RU)
  Receive Date: 20250304
  Receipt Date: 20250304
  Transmission Date: 20250408
  Serious: Yes (Other)
  Sender: ROCHE
  Company Number: RU-ROCHE-10000218651

PATIENT
  Sex: Female

DRUGS (1)
  1. ALECTINIB [Suspect]
     Active Substance: ALECTINIB
     Indication: Product used for unknown indication
     Dosage: 3 CAPSULES OF 150 MG TWICE DAILY
     Route: 048

REACTIONS (5)
  - Asthenia [Unknown]
  - Tremor [Unknown]
  - Respiratory tract infection viral [Unknown]
  - Influenza [Unknown]
  - Metastases to central nervous system [Unknown]
